FAERS Safety Report 7401651-2 (Version None)
Quarter: 2011Q2

REPORT INFORMATION
  Report Type: 
  Country: None (occurrence: None)
  Receive Date: 20110408
  Receipt Date: 20110404
  Transmission Date: 20111010
  Serious: No
  Sender: FDA-Public Use
  Company Number: US-BIOGENIDEC-2011BI012639

PATIENT
  Age: 51 Year
  Sex: Female

DRUGS (2)
  1. CLARITIN [Concomitant]
     Indication: PREMEDICATION
  2. TYSABRI [Suspect]
     Indication: MULTIPLE SCLEROSIS
     Route: 042
     Dates: start: 20110216

REACTIONS (10)
  - URINARY INCONTINENCE [None]
  - GAIT DISTURBANCE [None]
  - FAECAL INCONTINENCE [None]
  - CONCUSSION [None]
  - CONTUSION [None]
  - DEREALISATION [None]
  - FALL [None]
  - HEADACHE [None]
  - HEAD INJURY [None]
  - RESPIRATORY TRACT INFECTION [None]
